FAERS Safety Report 8290784-7 (Version None)
Quarter: 2012Q2

REPORT INFORMATION
  Report Type: 
  Country: None (occurrence: None)
  Receive Date: 20120417
  Receipt Date: 20120409
  Transmission Date: 20120825
  Serious: Yes (Death, Other)
  Sender: FDA-Public Use
  Company Number: US-CELGENEUS-163-21880-12041038

PATIENT

DRUGS (4)
  1. REVLIMID [Suspect]
     Dosage: 10 MILLIGRAM
     Route: 048
  2. ALLOPURINOL [Concomitant]
     Route: 065
  3. RITUXIMAB [Suspect]
     Dosage: 375 MILLIGRAM/SQ. METER
     Route: 041
  4. REVLIMID [Suspect]
     Dosage: 5MG-2.5MG
     Route: 048

REACTIONS (13)
  - INFECTION [None]
  - DIARRHOEA [None]
  - NEUTROPENIA [None]
  - MYELODYSPLASTIC SYNDROME [None]
  - TUMOUR FLARE [None]
  - PERIPHERAL SENSORY NEUROPATHY [None]
  - THROMBOCYTOPENIA [None]
  - RASH [None]
  - CONSTIPATION [None]
  - FATIGUE [None]
  - RICHTER'S SYNDROME [None]
  - COLON CANCER [None]
  - ANAEMIA [None]
